FAERS Safety Report 20536117 (Version 1)
Quarter: 2022Q1

REPORT INFORMATION
  Report Type: Spontaneous
  Country: US (occurrence: None)
  Receive Date: 20220302
  Receipt Date: 20220302
  Transmission Date: 20220423
  Serious: No
  Sender: FDA-Public Use
  Company Number: US-ROCHE-2790995

PATIENT
  Sex: Female

DRUGS (2)
  1. NUTROPIN [Suspect]
     Active Substance: SOMATROPIN
     Indication: Hypopituitarism
     Dosage: DAILY AT BEDTIME, 10 MG/ 2ML  NUSPIN 10 PEN
     Route: 058
     Dates: start: 20200424
  2. NUTROPIN [Suspect]
     Active Substance: SOMATROPIN

REACTIONS (3)
  - Drug delivery system malfunction [Unknown]
  - No adverse event [Unknown]
  - Product dose omission issue [Unknown]
